FAERS Safety Report 4935052-3 (Version None)
Quarter: 2006Q1

REPORT INFORMATION
  Report Type: 
  Country: None (occurrence: None)
  Receive Date: 20060306
  Receipt Date: 20060306
  Transmission Date: 20060701
  Serious: Yes (Other)
  Sender: FDA-Public Use
  Company Number: None

PATIENT
  Sex: Female

DRUGS (2)
  1. DURAGESIC-100 [Suspect]
     Indication: BACK PAIN
     Dosage: 100 MCG Q 48 HOURS
     Dates: start: 20060227
  2. DURAGESIC-100 [Suspect]
     Indication: PAIN
     Dosage: 100 MCG Q 48 HOURS
     Dates: start: 20060227

REACTIONS (1)
  - APPLICATION SITE DERMATITIS [None]
